FAERS Safety Report 5130968-X (Version None)
Quarter: 2006Q3

REPORT INFORMATION
  Report Type: 
  Country: None (occurrence: None)
  Receive Date: 20060829
  Receipt Date: 20060712
  Transmission Date: 20061208
  Serious: No
  Sender: FDA-Public Use
  Company Number: PHEH2006US08993

PATIENT
  Age: 28 Year
  Sex: Male
  Weight: 70.7 kg

DRUGS (1)
  1. EXJADE [Suspect]
     Indication: SICKLE CELL ANAEMIA
     Dosage: 1500 MG, QD, ORAL
     Route: 048
     Dates: start: 20060302, end: 20060712

REACTIONS (2)
  - ABDOMINAL DISCOMFORT [None]
  - DIARRHOEA [None]
